FAERS Safety Report 8237720-7 (Version None)
Quarter: 2012Q1

REPORT INFORMATION
  Report Type: 
  Country: None (occurrence: None)
  Receive Date: 20120327
  Receipt Date: 20120321
  Transmission Date: 20120608
  Serious: Yes (Death, Hospitalization, Other)
  Sender: FDA-Public Use
  Company Number: DE-ACTELION-A-US2012-62497

PATIENT

DRUGS (3)
  1. TRACLEER [Concomitant]
     Dosage: UNK
     Route: 048
     Dates: start: 20100610, end: 20120309
  2. COUMADIN [Suspect]
  3. VENTAVIS [Suspect]
     Indication: PULMONARY ARTERIAL HYPERTENSION
     Dosage: UNK
     Route: 055
     Dates: start: 20111222, end: 20120303

REACTIONS (4)
  - PNEUMOCOCCAL SEPSIS [None]
  - RESPIRATORY FAILURE [None]
  - INTERNATIONAL NORMALISED RATIO INCREASED [None]
  - OVERDOSE [None]
